FAERS Safety Report 9391359 (Version 2)
Quarter: 2013Q3

REPORT INFORMATION
  Report Type: Spontaneous
  Country: FR (occurrence: FR)
  Receive Date: 20130709
  Receipt Date: 20130709
  Transmission Date: 20140515
  Serious: Yes (Death, Other)
  Sender: FDA-Public Use
  Company Number: FR-ASTRAZENECA-2013SE21613

PATIENT
  Age: 35765 Day
  Sex: Female
  Weight: 32 kg

DRUGS (6)
  1. EMLA PATCH [Suspect]
     Indication: LOCAL ANAESTHESIA
     Dosage: 2 DF EVERY DAY OR EVERY OTHER DAY
     Route: 061
     Dates: start: 20130322, end: 20130401
  2. CEFTRIAXONE [Concomitant]
     Indication: URINARY TRACT INFECTION
  3. HYDRO-GEL [Concomitant]
     Indication: DECUBITUS ULCER
  4. AQUACEL [Concomitant]
     Indication: DECUBITUS ULCER
  5. HYDROCOLLOID DRESSING [Concomitant]
     Indication: DECUBITUS ULCER
     Dosage: MEPILEX OR AQUACEL FOAM
  6. ANTALGIC DRUGS [Concomitant]

REACTIONS (5)
  - Somnolence [Fatal]
  - Decreased appetite [Fatal]
  - Off label use [Recovered/Resolved]
  - Somnolence [None]
  - Urinary tract infection [None]
